FAERS Safety Report 20877719 (Version 4)
Quarter: 2022Q3

REPORT INFORMATION
  Report Type: Report from Study
  Country: US (occurrence: None)
  Receive Date: 20220526
  Receipt Date: 20220831
  Transmission Date: 20221027
  Serious: Yes (Hospitalization)
  Sender: FDA-Public Use
  Company Number: US-ROCHE-3100103

PATIENT
  Age: 62 Year
  Sex: Female
  Weight: 56.296 kg

DRUGS (2)
  1. EFINEPTAKIN ALFA [Suspect]
     Active Substance: EFINEPTAKIN ALFA
     Indication: Non-small cell lung cancer metastatic
     Dosage: STRENGTH 1200 MCG/KG.?ON 28/MAR/2022 CYCLE 5 DAY 1, NT-I7 DOSE WAS MODIFIED TO 67.2 MG.
     Route: 030
     Dates: start: 20211220
  2. ATEZOLIZUMAB [Suspect]
     Active Substance: ATEZOLIZUMAB
     Indication: Non-small cell lung cancer metastatic
     Route: 041
     Dates: start: 20211220

REACTIONS (1)
  - Haemoptysis [Not Recovered/Not Resolved]

NARRATIVE: CASE EVENT DATE: 20220503
